FAERS Safety Report 8027605-3 (Version None)
Quarter: 2011Q4

REPORT INFORMATION
  Report Type: 
  Country: None (occurrence: None)
  Receive Date: 20111130
  Receipt Date: 20110928
  Transmission Date: 20120403
  Serious: Yes (Other)
  Sender: FDA-Public Use
  Company Number: US201109008064

PATIENT
  Age: 71 Year
  Sex: Female
  Weight: 74.4 kg

DRUGS (15)
  1. BYSTOLIC [Concomitant]
  2. HYZAAR [Concomitant]
  3. ACTOS [Concomitant]
  4. VESICARE [Concomitant]
  5. CALCITROL (CALCIUM CARBONATE, ERGOCALCIFEROL, RETINOL) [Concomitant]
  6. GLIMEPIRIDE [Concomitant]
  7. HYDRALAZINE HCL [Concomitant]
  8. VYTORIN (EZETIMIBE, SIMVASTATIN) 08/--/2011 TO ONGOING [Concomitant]
  9. VITAMIN D [Concomitant]
  10. VITAMIN B12 [Concomitant]
  11. STOOL SOFTENER (DOCUSATE SODIUM) [Concomitant]
  12. BYETTA [Suspect]
     Indication: TYPE 2 DIABETES MELLITUS
     Dosage: 5 UG, BID, SUBCUTANEOUS 10 UG, BID SUBCUTANEOUS
     Route: 058
     Dates: end: 20110912
  13. VYTORIN [Concomitant]
  14. FUROSEMIDE [Concomitant]
  15. ASPIRIN [Concomitant]

REACTIONS (5)
  - GLYCOSYLATED HAEMOGLOBIN DECREASED [None]
  - RENAL FAILURE [None]
  - BLOOD PRESSURE INCREASED [None]
  - BLOOD PHOSPHORUS INCREASED [None]
  - WEIGHT DECREASED [None]
